FAERS Safety Report 25213126 (Version 3)
Quarter: 2025Q3

REPORT INFORMATION
  Report Type: Report from Study
  Country: CD (occurrence: CD)
  Receive Date: 20250418
  Receipt Date: 20250730
  Transmission Date: 20251021
  Serious: Yes (Hospitalization, Disabling)
  Sender: EMERGENT BIOSOLUTIONS
  Company Number: CD-EMERGENT BIOSOLUTIONS-25000049

PATIENT
  Age: 8 Year
  Sex: Male
  Weight: 22 kg

DRUGS (9)
  1. BRINCIDOFOVIR [Suspect]
     Active Substance: BRINCIDOFOVIR
     Indication: Monkeypox
     Dosage: UNK 4 MG/KG, 1/WEEK, ON DAY 1 AND DAY 8)
     Route: 048
     Dates: start: 20250209, end: 20250216
  2. INVESTIGATIONAL PRODUCT [Suspect]
     Active Substance: INVESTIGATIONAL PRODUCT
     Indication: Monkeypox
     Dosage: UNK 4 MG/KG, 1/WEEK, ON DAY 1 AND DAY 8)
     Route: 048
     Dates: start: 20250209, end: 20250216
  3. ACETAMINOPHEN [Concomitant]
     Active Substance: ACETAMINOPHEN
     Indication: Malaria
     Dates: start: 20250222, end: 20250225
  4. AMOXICILLIN [Concomitant]
     Active Substance: AMOXICILLIN
     Indication: Malaria
     Route: 065
  5. ARTESUNATE [Concomitant]
     Active Substance: ARTESUNATE
     Indication: Malaria
     Route: 065
  6. ARTEMETHER [Concomitant]
     Active Substance: ARTEMETHER
     Indication: Malaria
     Route: 065
  7. LUMEFANTRINE [Concomitant]
     Active Substance: LUMEFANTRINE
     Indication: Malaria
     Route: 065
  8. METOCLOPRAMIDE [Concomitant]
     Active Substance: METOCLOPRAMIDE
     Indication: Malaria
     Route: 065
  9. TRAMADOL [Concomitant]
     Active Substance: TRAMADOL
     Indication: Malaria
     Route: 065

REACTIONS (1)
  - Epiphysiolysis [Recovered/Resolved]

NARRATIVE: CASE EVENT DATE: 20250225
